FAERS Safety Report 9751096 (Version 2)
Quarter: 2013Q4

REPORT INFORMATION
  Report Type: Spontaneous
  Country: US (occurrence: US)
  Receive Date: 20131212
  Receipt Date: 20131213
  Transmission Date: 20140711
  Serious: No
  Sender: FDA-Public Use
  Company Number: US-TEVA-401303USA

PATIENT
  Age: 28 Year
  Sex: Female
  Weight: 58.11 kg

DRUGS (2)
  1. PARAGARD 380A [Suspect]
     Indication: CONTRACEPTION
     Route: 015
     Dates: start: 20130306, end: 201304
  2. PARAGARD 380A [Suspect]
     Route: 015
     Dates: start: 201304

REACTIONS (2)
  - Device expulsion [Recovered/Resolved]
  - Smear cervix abnormal [Recovered/Resolved]
